FAERS Safety Report 24454199 (Version 2)
Quarter: 2024Q4

REPORT INFORMATION
  Report Type: Report from Study
  Country: US (occurrence: US)
  Receive Date: 20241017
  Receipt Date: 20241018
  Transmission Date: 20250115
  Serious: No
  Sender: ROCHE
  Company Number: US-ROCHE-3465474

PATIENT
  Age: 65 Year
  Sex: Female

DRUGS (13)
  1. RITUXAN [Suspect]
     Active Substance: RITUXIMAB
     Indication: Dermatomyositis
     Dosage: THEN 1000 MG EVERY 6 MONTHS
     Route: 041
  2. CIPROFLOXACIN [Concomitant]
     Active Substance: CIPROFLOXACIN
  3. ALBUTEROL [Concomitant]
     Active Substance: ALBUTEROL
  4. MUPIROCIN [Concomitant]
     Active Substance: MUPIROCIN
  5. TACROLIMUS [Concomitant]
     Active Substance: TACROLIMUS
  6. PREDNISONE [Concomitant]
     Active Substance: PREDNISONE
  7. MODAFINIL [Concomitant]
     Active Substance: MODAFINIL
  8. MIRTAZAPINE [Concomitant]
     Active Substance: MIRTAZAPINE
  9. ARICEPT [Concomitant]
     Active Substance: DONEPEZIL HYDROCHLORIDE
  10. TEGRETOL [Concomitant]
     Active Substance: CARBAMAZEPINE
  11. METFORMIN [Concomitant]
     Active Substance: METFORMIN HYDROCHLORIDE
  12. LEVOTHYROXINE [Concomitant]
     Active Substance: LEVOTHYROXINE
  13. CYMBALTA [Concomitant]
     Active Substance: DULOXETINE HYDROCHLORIDE

REACTIONS (3)
  - Off label use [Unknown]
  - Aphasia [Unknown]
  - Ill-defined disorder [Unknown]
